FAERS Safety Report 5933754-3 (Version None)
Quarter: 2008Q4

REPORT INFORMATION
  Report Type: 
  Country: None (occurrence: None)
  Receive Date: 20081024
  Receipt Date: 20081008
  Transmission Date: 20090506
  Serious: Yes (Hospitalization)
  Sender: FDA-Public Use
  Company Number: DSA_32526_2008

PATIENT
  Sex: Female

DRUGS (7)
  1. TETRABENAZINE (TETRABENAZINE) [Suspect]
     Indication: DYSKINESIA
     Dosage: (25 MG BID, DOSE SLOWLY TITRATED TO 25 MG, TWICE A DAY, ORAL)
     Route: 048
     Dates: start: 20080901, end: 20080901
  2. CYMBALTA [Concomitant]
  3. THROXINE [Concomitant]
  4. PRAVACHOL [Concomitant]
  5. DIABEX [Concomitant]
  6. RAMIPRIL [Concomitant]
  7. TOCOPHEROL CONCENTRATE CAP [Concomitant]

REACTIONS (4)
  - HALLUCINATION [None]
  - NAUSEA [None]
  - PSYCHOTIC DISORDER [None]
  - TREMOR [None]
